FAERS Safety Report 19677111 (Version 1)
Quarter: 2021Q3

REPORT INFORMATION
  Report Type: Spontaneous
  Country: US (occurrence: US)
  Receive Date: 20210810
  Receipt Date: 20210810
  Transmission Date: 20211014
  Serious: Yes (Death)
  Sender: FDA-Public Use
  Company Number: US-MDD US OPERATIONS-MDD202107-001553

PATIENT
  Age: 71 Year
  Sex: Female
  Weight: 165 kg

DRUGS (10)
  1. XANAX [Concomitant]
     Active Substance: ALPRAZOLAM
     Dosage: NOT PROVIDED
  2. PROTONIX [Concomitant]
     Active Substance: PANTOPRAZOLE SODIUM
     Dosage: NOT PROVIDED
  3. PREMARIN [Concomitant]
     Active Substance: ESTROGENS, CONJUGATED
     Dosage: NOT PROVIDED
  4. TRIHEXYPHENIDYL HCL [Concomitant]
     Active Substance: TRIHEXYPHENIDYL HYDROCHLORIDE
     Dosage: NOT PROVIDED
  5. ROPINIROLE. [Concomitant]
     Active Substance: ROPINIROLE
     Dosage: NOT PROVIDED
  6. PREDNISONE. [Concomitant]
     Active Substance: PREDNISONE
     Dosage: NOT PROVIDED
  7. ASPIRIN. [Concomitant]
     Active Substance: ASPIRIN
     Dosage: 100%
  8. LEVOTHYROXINE SODIUM. [Concomitant]
     Active Substance: LEVOTHYROXINE SODIUM
     Dosage: 100%
  9. APOKYN [Suspect]
     Active Substance: APOMORPHINE HYDROCHLORIDE
     Indication: PARKINSON^S DISEASE
     Dosage: UPTO 0.2 ML
     Route: 058
     Dates: start: 20200115
  10. SINEMET [Concomitant]
     Active Substance: CARBIDOPA\LEVODOPA
     Dosage: 25?250 MG

REACTIONS (1)
  - Death [Fatal]
